FAERS Safety Report 11343823 (Version 1)
Quarter: 2015Q3

REPORT INFORMATION
  Report Type: Spontaneous
  Country: US (occurrence: None)
  Receive Date: 20150804
  Receipt Date: 20150804
  Transmission Date: 20151125
  Serious: Yes (Life-Threatening, Hospitalization)
  Sender: FDA-Public Use
  Company Number: None

PATIENT
  Age: 57 Year
  Sex: Male
  Weight: 93.9 kg

DRUGS (2)
  1. GADOTERIDOL [Suspect]
     Active Substance: GADOTERIDOL
     Indication: PRODUCT USED FOR UNKNOWN INDICATION
     Dosage: {20 SECOND INJECTION?20ML SINGLE DOSE/EXAM INTRAVENOUS
     Route: 042
  2. NEXIUM [Concomitant]
     Active Substance: ESOMEPRAZOLE MAGNESIUM

REACTIONS (6)
  - Dyspnoea [None]
  - Contrast media reaction [None]
  - Cardio-respiratory arrest [None]
  - Muscle rigidity [None]
  - Erythema [None]
  - Nausea [None]

NARRATIVE: CASE EVENT DATE: 20150727
